FAERS Safety Report 16467806 (Version 1)
Quarter: 2019Q2

REPORT INFORMATION
  Report Type: Spontaneous
  Country: JP (occurrence: JP)
  Receive Date: 20190624
  Receipt Date: 20190624
  Transmission Date: 20190711
  Serious: Yes (Other)
  Sender: FDA-Public Use
  Company Number: JP-GLAXOSMITHKLINE-JP2019JPN110431

PATIENT
  Age: 68 Year
  Sex: Male

DRUGS (1)
  1. RELVAR ELLIPTA [Suspect]
     Active Substance: FLUTICASONE FUROATE\VILANTEROL TRIFENATATE
     Dosage: UNK
     Route: 055

REACTIONS (4)
  - Therapeutic response decreased [Unknown]
  - Lung neoplasm malignant [Unknown]
  - Dyspnoea exertional [Unknown]
  - Expired product administered [Unknown]
